FAERS Safety Report 7328119-6 (Version None)
Quarter: 2011Q1

REPORT INFORMATION
  Report Type: 
  Country: None (occurrence: None)
  Receive Date: 20110303
  Receipt Date: 20110217
  Transmission Date: 20110831
  Serious: Yes (Hospitalization)
  Sender: FDA-Public Use
  Company Number: PHHO2011FR00762

PATIENT
  Sex: Male
  Weight: 77 kg

DRUGS (12)
  1. ALISKIREN [Suspect]
     Indication: CORONARY ARTERY DISEASE
     Dosage: UNK
     Dates: start: 20100526
  2. SIMVASTATIN [Concomitant]
     Dosage: UNK
     Dates: start: 20100428
  3. BLINDED NO TREATMENT RECEIVED [Suspect]
     Indication: CORONARY ARTERY DISEASE
     Dosage: CODE NOT BROKEN
     Route: 048
     Dates: start: 20100603
  4. BLINDED PLACEBO [Suspect]
     Indication: CORONARY ARTERY DISEASE
     Dosage: CODE NOT BROKEN
     Route: 048
     Dates: start: 20100603
  5. CARDEGIC [Concomitant]
     Dosage: UNK
     Dates: start: 20100428
  6. NEXIUM [Concomitant]
  7. BLINDED ALISKIREN [Suspect]
     Indication: CORONARY ARTERY DISEASE
     Dosage: CODE NOT BROKEN
     Route: 048
     Dates: start: 20100603
  8. EUPRESSYL [Concomitant]
     Dosage: UNK
     Dates: start: 20100806
  9. ISOPTIN [Concomitant]
     Dosage: UNK
     Dates: start: 20101201
  10. ESIDRIX [Concomitant]
     Indication: HYPERTENSION
     Dosage: UNK
     Dates: start: 20100504
  11. PLAVIX [Concomitant]
     Dosage: UNK
     Dates: start: 20100427
  12. COVERSUM [Concomitant]
     Indication: HYPERTENSION

REACTIONS (7)
  - ANGINA PECTORIS [None]
  - CONCOMITANT DISEASE PROGRESSION [None]
  - CORONARY REVASCULARISATION [None]
  - ACUTE CORONARY SYNDROME [None]
  - CHEST PAIN [None]
  - CORONARY ANGIOPLASTY [None]
  - CORONARY ARTERIAL STENT INSERTION [None]
